FAERS Safety Report 7819526-3 (Version None)
Quarter: 2011Q4

REPORT INFORMATION
  Report Type: 
  Country: None (occurrence: None)
  Receive Date: 20111018
  Receipt Date: 20110808
  Transmission Date: 20120403
  Serious: No
  Sender: FDA-Public Use
  Company Number: US-ASTRAZENECA-2010SE45729

PATIENT
  Age: 66 Year
  Sex: Female
  Weight: 68 kg

DRUGS (3)
  1. MEDICATION FOR CHOLESTEROL [Concomitant]
  2. SYMBICORT [Suspect]
     Indication: BRONCHITIS
     Dosage: 80/4.5 1 PUFF TWO TIMES A DAY
     Route: 055
  3. MEDICATION FOR THYROID [Concomitant]

REACTIONS (5)
  - VISION BLURRED [None]
  - MUSCULOSKELETAL PAIN [None]
  - DIZZINESS [None]
  - PALPITATIONS [None]
  - CHEST PAIN [None]
